FAERS Safety Report 17186754 (Version 2)
Quarter: 2019Q4

REPORT INFORMATION
  Report Type: Spontaneous
  Country: JP (occurrence: JP)
  Receive Date: 20191220
  Receipt Date: 20191220
  Transmission Date: 20200122
  Serious: Yes (Death, Other)
  Sender: FDA-Public Use
  Company Number: JP-ASTRAZENECA-2019SF21951

PATIENT
  Age: 81 Year
  Sex: Female
  Weight: 45 kg

DRUGS (2)
  1. TAGRISSO [Suspect]
     Active Substance: OSIMERTINIB
     Indication: NON-SMALL CELL LUNG CANCER
     Route: 048
     Dates: start: 20190806, end: 20190818
  2. MEDICON [Concomitant]
     Active Substance: DEXTROMETHORPHAN HYDROBROMIDE
     Indication: COUGH
     Route: 048

REACTIONS (4)
  - Stomatitis [Unknown]
  - Diarrhoea [Recovered/Resolved]
  - Interstitial lung disease [Fatal]
  - Lymphangiosis carcinomatosa [Unknown]

NARRATIVE: CASE EVENT DATE: 20190808
